FAERS Safety Report 5376698-0 (Version None)
Quarter: 2007Q2

REPORT INFORMATION
  Report Type: 
  Country: None (occurrence: None)
  Receive Date: 20070629
  Receipt Date: 20070615
  Transmission Date: 20071010
  Serious: Yes (Death)
  Sender: FDA-Public Use
  Company Number: US020302

PATIENT
  Age: 17 Year
  Sex: Male

DRUGS (2)
  1. ACTIQ [Suspect]
     Dosage: BUCCAL
     Route: 002
     Dates: start: 20070415, end: 20070415
  2. METHADONE HCL [Suspect]
     Dates: start: 20070415, end: 20070415

REACTIONS (5)
  - DRUG ABUSER [None]
  - DRUG TOXICITY [None]
  - LOSS OF CONSCIOUSNESS [None]
  - PULSE ABSENT [None]
  - SUDDEN DEATH [None]
